FAERS Safety Report 7936176-9 (Version None)
Quarter: 2011Q4

REPORT INFORMATION
  Report Type: 
  Country: None (occurrence: None)
  Receive Date: 20111123
  Receipt Date: 20111121
  Transmission Date: 20120403
  Serious: Yes (Death, Other)
  Sender: FDA-Public Use
  Company Number: AU-PFIZER INC-2011284835

PATIENT
  Age: 68 Year
  Sex: Male

DRUGS (2)
  1. SUTENT [Suspect]
     Indication: METASTATIC RENAL CELL CARCINOMA
     Dosage: 50 MG, UNK
     Dates: start: 20080228
  2. SUTENT [Suspect]
     Dosage: 25 MG, UNK

REACTIONS (3)
  - NEOPLASM MALIGNANT [None]
  - HEAD AND NECK CANCER [None]
  - SQUAMOUS CELL CARCINOMA [None]
